FAERS Safety Report 11917655 (Version 6)
Quarter: 2017Q2

REPORT INFORMATION
  Report Type: Spontaneous
  Country: BG (occurrence: BG)
  Receive Date: 20160114
  Receipt Date: 20170531
  Transmission Date: 20170829
  Serious: Yes (Death, Hospitalization)
  Sender: FDA-Public Use
  Company Number: BG-B.I. PHARMACEUTICALS,INC./RIDGEFIELD-2016-BI-01138BQ

PATIENT
  Age: 60 Year
  Sex: Male

DRUGS (11)
  1. ASPIRIN PROTECT [Concomitant]
     Active Substance: ASPIRIN
     Indication: ARRHYTHMIA
     Dosage: STRENGTH: 50
     Route: 065
     Dates: start: 201512, end: 20160106
  2. PRADAXA [Suspect]
     Active Substance: DABIGATRAN ETEXILATE MESYLATE
     Indication: ARRHYTHMIA
     Route: 065
     Dates: start: 201512, end: 20160106
  3. ZOFEN [Concomitant]
     Active Substance: IBUPROFEN
     Indication: PRODUCT USED FOR UNKNOWN INDICATION
     Route: 065
  4. SPIRONOLACTON [Concomitant]
     Active Substance: SPIRONOLACTONE
     Indication: PRODUCT USED FOR UNKNOWN INDICATION
     Route: 065
  5. PRAXBIND [Suspect]
     Active Substance: IDARUCIZUMAB
     Indication: HAEMORRHAGE
     Dosage: UNIT DOSE: 2.5 PLUS 2.5 G IV
     Route: 042
  6. PLAVIX [Concomitant]
     Active Substance: CLOPIDOGREL BISULFATE
     Indication: ARRHYTHMIA
     Route: 065
     Dates: start: 201512, end: 20160106
  7. ASA [Concomitant]
     Active Substance: ASPIRIN
     Indication: PRODUCT USED FOR UNKNOWN INDICATION
     Route: 065
  8. CLOPIDOGREL [Concomitant]
     Active Substance: CLOPIDOGREL BISULFATE
     Indication: PRODUCT USED FOR UNKNOWN INDICATION
     Route: 065
  9. BISOGAMMA [Concomitant]
     Active Substance: BISOPROLOL FUMARATE
     Indication: PRODUCT USED FOR UNKNOWN INDICATION
     Route: 065
  10. PANTOPRAZOLE [Concomitant]
     Active Substance: PANTOPRAZOLE
     Indication: PRODUCT USED FOR UNKNOWN INDICATION
     Route: 065
  11. AMIODARONE [Concomitant]
     Active Substance: AMIODARONE
     Indication: PRODUCT USED FOR UNKNOWN INDICATION
     Route: 065

REACTIONS (7)
  - Shock haemorrhagic [Fatal]
  - Renal failure [Fatal]
  - Gingival bleeding [Unknown]
  - Abdominal wall haematoma [Unknown]
  - Cardiac failure [Fatal]
  - Gastrointestinal haemorrhage [Unknown]
  - Subcutaneous haematoma [Unknown]

NARRATIVE: CASE EVENT DATE: 20160107
